FAERS Safety Report 23150737 (Version 1)
Quarter: 2023Q4

REPORT INFORMATION
  Report Type: Spontaneous
  Country: CA (occurrence: CA)
  Receive Date: 20231106
  Receipt Date: 20231106
  Transmission Date: 20240110
  Serious: Yes (Hospitalization, Other)
  Sender: FDA-Public Use
  Company Number: CA-TEVA-2023-CA-2941430

PATIENT

DRUGS (12)
  1. ONDANSETRON [Suspect]
     Active Substance: ONDANSETRON
     Indication: Morning sickness
     Route: 065
  2. ONDANSETRON [Suspect]
     Active Substance: ONDANSETRON
     Indication: Hyperemesis gravidarum
  3. SUMATRIPTAN [Suspect]
     Active Substance: SUMATRIPTAN
     Indication: Migraine
     Route: 065
  4. SUMATRIPTAN [Suspect]
     Active Substance: SUMATRIPTAN
     Route: 048
  5. DIMENHYDRINATE [Suspect]
     Active Substance: DIMENHYDRINATE
     Indication: Morning sickness
     Route: 042
  6. DIMENHYDRINATE [Suspect]
     Active Substance: DIMENHYDRINATE
     Indication: Hyperemesis gravidarum
  7. FAMOTIDINE [Suspect]
     Active Substance: FAMOTIDINE
     Indication: Morning sickness
     Dosage: 20 MILLIGRAM DAILY;
     Route: 042
  8. FAMOTIDINE [Suspect]
     Active Substance: FAMOTIDINE
     Indication: Hyperemesis gravidarum
  9. DOXYLAMINE SUCCINATE AND PYRIDOXINE HYDROCHLORIDE [Suspect]
     Active Substance: DOXYLAMINE SUCCINATE\PYRIDOXINE HYDROCHLORIDE
     Indication: Morning sickness
     Dosage: 40 MILLIGRAM DAILY;
     Route: 048
  10. DOXYLAMINE SUCCINATE AND PYRIDOXINE HYDROCHLORIDE [Suspect]
     Active Substance: DOXYLAMINE SUCCINATE\PYRIDOXINE HYDROCHLORIDE
     Indication: Hyperemesis gravidarum
  11. PROCHLORPERAZINE [Suspect]
     Active Substance: PROCHLORPERAZINE
     Indication: Morning sickness
     Route: 048
  12. PROCHLORPERAZINE [Suspect]
     Active Substance: PROCHLORPERAZINE
     Indication: Hyperemesis gravidarum
     Route: 048

REACTIONS (4)
  - Abortion spontaneous [Recovered/Resolved]
  - Serotonin syndrome [Recovered/Resolved]
  - Drug ineffective for unapproved indication [Recovered/Resolved]
  - Off label use [Recovered/Resolved]
